FAERS Safety Report 18274330 (Version 2)
Quarter: 2020Q4

REPORT INFORMATION
  Report Type: Spontaneous
  Country: US (occurrence: US)
  Receive Date: 20200916
  Receipt Date: 20201006
  Transmission Date: 20210113
  Serious: No
  Sender: FDA-Public Use
  Company Number: US-ALEMBIC PHARMACUETICALS LIMITED-2020SCAL000393

PATIENT

DRUGS (2)
  1. BROMFENAC [Suspect]
     Active Substance: BROMFENAC SODIUM
     Indication: DRUG THERAPY
     Dosage: BID, ONE DROP IN THE MORNING AND ONE DROP AT NIGHT
     Route: 047
     Dates: start: 20200815
  2. PREDNISOLONE [PREDNISOLONE ACETATE] [Concomitant]
     Active Substance: PREDNISOLONE ACETATE
     Indication: EYE INFECTION
     Dosage: 1 %, ONE IN THE MORNING AND ONE AT NIGHT
     Route: 047

REACTIONS (2)
  - Product dose omission issue [Recovered/Resolved]
  - Visual impairment [Not Recovered/Not Resolved]

NARRATIVE: CASE EVENT DATE: 20200828
